FAERS Safety Report 9096031 (Version 1)
Quarter: 2013Q1

REPORT INFORMATION
  Report Type: Spontaneous
  Country: GB (occurrence: GB)
  Receive Date: 20130207
  Receipt Date: 20130207
  Transmission Date: 20140127
  Serious: Yes (Hospitalization, Other)
  Sender: FDA-Public Use
  Company Number: GB-ABBOTT-12P-167-1021507-00

PATIENT
  Age: 48 Year
  Sex: Female

DRUGS (4)
  1. VALPROATE SODIUM [Suspect]
     Indication: PRODUCT USED FOR UNKNOWN INDICATION
  2. AMISULPRIDE [Suspect]
     Indication: PRODUCT USED FOR UNKNOWN INDICATION
  3. ZAPONEX [Suspect]
     Indication: PRODUCT USED FOR UNKNOWN INDICATION
     Route: 048
     Dates: start: 20070309, end: 20121113
  4. CLOZAPINE [Concomitant]
     Indication: PRODUCT USED FOR UNKNOWN INDICATION
     Dosage: (PREVIOUS)
     Dates: start: 19970527, end: 20070308

REACTIONS (5)
  - Schizophrenia [Unknown]
  - Treatment noncompliance [Recovering/Resolving]
  - Leukopenia [Recovering/Resolving]
  - Neutropenia [Recovering/Resolving]
  - Neutrophil count decreased [Unknown]
